FAERS Safety Report 24024208 (Version 1)
Quarter: 2024Q2

REPORT INFORMATION
  Report Type: Spontaneous
  Country: US (occurrence: US)
  Receive Date: 20240627
  Receipt Date: 20240627
  Transmission Date: 20240716
  Serious: Yes (Other)
  Sender: FDA-Public Use
  Company Number: US-009507513-2406USA008931

PATIENT
  Sex: Male

DRUGS (2)
  1. KEYTRUDA [Suspect]
     Active Substance: PEMBROLIZUMAB
     Indication: Renal cancer
  2. INLYTA [Suspect]
     Active Substance: AXITINIB
     Indication: Renal cancer
     Dosage: 5 MILLIGRAM, QD
     Route: 048
     Dates: start: 202310

REACTIONS (5)
  - Prostatic operation [Unknown]
  - Rash [Recovered/Resolved]
  - Fatigue [Unknown]
  - Hypertension [Unknown]
  - Impaired healing [Unknown]

NARRATIVE: CASE EVENT DATE: 20240101
